FAERS Safety Report 20611959 (Version 1)
Quarter: 2022Q1

REPORT INFORMATION
  Report Type: Spontaneous
  Country: US (occurrence: US)
  Receive Date: 20220318
  Receipt Date: 20220318
  Transmission Date: 20220423
  Serious: No
  Sender: FDA-Public Use
  Company Number: US-GILEAD-2022-0574279

PATIENT
  Age: 50 Year
  Sex: Female

DRUGS (4)
  1. AMBRISENTAN [Suspect]
     Active Substance: AMBRISENTAN
     Indication: Pulmonary arterial hypertension
     Dosage: UNK
     Route: 065
     Dates: end: 202202
  2. TYVASO [Suspect]
     Active Substance: TREPROSTINIL
     Indication: Pulmonary arterial hypertension
     Dosage: 24 UG (4 BREATHS), QID
     Route: 055
     Dates: start: 20211103
  3. TYVASO [Suspect]
     Active Substance: TREPROSTINIL
     Dosage: 18 UG (3 BREATHS), QID
     Route: 055
     Dates: start: 202112
  4. TYVASO [Suspect]
     Active Substance: TREPROSTINIL
     Dosage: UNK
     Route: 055
     Dates: start: 20210311

REACTIONS (8)
  - Contusion [Recovered/Resolved]
  - Platelet count decreased [Unknown]
  - Epistaxis [Unknown]
  - Dyspnoea exertional [Unknown]
  - Nausea [Unknown]
  - Abdominal distension [Unknown]
  - Decreased appetite [Unknown]
  - Product dose omission in error [Not Recovered/Not Resolved]

NARRATIVE: CASE EVENT DATE: 20211201
